FAERS Safety Report 7748312-8 (Version None)
Quarter: 2011Q3

REPORT INFORMATION
  Report Type: 
  Country: None (occurrence: None)
  Receive Date: 20110913
  Receipt Date: 20110907
  Transmission Date: 20111222
  Serious: Yes (Other)
  Sender: FDA-Public Use
  Company Number: PHHY2010US86532

PATIENT
  Sex: Female

DRUGS (4)
  1. REMERON [Concomitant]
     Indication: DEPRESSION
     Dosage: 20 MG, QHS
  2. ACD [Concomitant]
     Indication: MULTIPLE SCLEROSIS RELAPSE PROPHYLAXIS
     Dosage: UNK
  3. GILENYA [Suspect]
     Indication: MULTIPLE SCLEROSIS
     Dosage: 0.5 MG, QD
     Route: 048
     Dates: start: 20101210
  4. AMITRIPTYLINE HCL [Concomitant]
     Indication: SLEEP DISORDER
     Dosage: 10 MG, QHS
     Route: 048

REACTIONS (4)
  - MYALGIA [None]
  - FATIGUE [None]
  - ARTHRALGIA [None]
  - ASTHENIA [None]
